FAERS Safety Report 9175830 (Version 10)
Quarter: 2013Q4

REPORT INFORMATION
  Report Type: Spontaneous
  Country: US (occurrence: US)
  Receive Date: 20130320
  Receipt Date: 20131231
  Transmission Date: 20140711
  Serious: Yes (Hospitalization, Disabling, Other)
  Sender: FDA-Public Use
  Company Number: US-009507513-1303USA008129

PATIENT
  Sex: Female
  Weight: 56.24 kg

DRUGS (3)
  1. FOSAMAX [Suspect]
     Indication: OSTEOPENIA
     Dosage: 35 MG, UNK
     Route: 048
     Dates: start: 20021231, end: 200307
  2. ACTONEL [Suspect]
     Indication: OSTEOPENIA
     Dosage: 35 MG, UNK
     Route: 048
     Dates: start: 200309, end: 200809
  3. BONIVA [Suspect]
     Indication: OSTEOPENIA
     Dosage: 150 MG, UNK
     Route: 048
     Dates: start: 200810, end: 200910

REACTIONS (56)
  - Femur fracture [Recovering/Resolving]
  - Arrhythmia [Unknown]
  - Cardiac ablation [Unknown]
  - Chest pain [Unknown]
  - Osteonecrosis of jaw [Not Recovered/Not Resolved]
  - Infection [Unknown]
  - Tooth loss [Unknown]
  - Cataract operation [Unknown]
  - Cataract operation [Unknown]
  - Pelvic fracture [Unknown]
  - Periodontal operation [Unknown]
  - Periodontal disease [Unknown]
  - Edentulous [Unknown]
  - Periodontal operation [Unknown]
  - Gingivitis [Unknown]
  - Senile osteoporosis [Unknown]
  - Tooth infection [Unknown]
  - Bone fragmentation [Unknown]
  - Bone lesion [Unknown]
  - Infection [Unknown]
  - Chills [Unknown]
  - Diverticulum intestinal [Unknown]
  - Rectal haemorrhage [Recovering/Resolving]
  - Tooth fracture [Unknown]
  - Skin exfoliation [Unknown]
  - Haematochezia [Unknown]
  - Impaired healing [Unknown]
  - Body height decreased [Unknown]
  - Osteomyelitis [Not Recovered/Not Resolved]
  - Spinal compression fracture [Unknown]
  - Clostridium difficile colitis [Unknown]
  - Pathological fracture [Unknown]
  - Colonoscopy [Unknown]
  - Hand fracture [Recovered/Resolved]
  - Finger deformity [Recovered/Resolved]
  - Fracture malunion [Recovered/Resolved]
  - Sleep apnoea syndrome [Unknown]
  - Cardiac murmur [Unknown]
  - Sciatica [Unknown]
  - Heart rate irregular [Unknown]
  - Fall [Unknown]
  - Intervertebral disc degeneration [Unknown]
  - Osteoarthritis [Unknown]
  - Tooth extraction [Unknown]
  - Tooth loss [Unknown]
  - Tooth extraction [Unknown]
  - Tooth loss [Unknown]
  - Oropharyngeal pain [Unknown]
  - Back pain [Unknown]
  - Arthralgia [Unknown]
  - Abdominal discomfort [Unknown]
  - Pyrexia [Unknown]
  - Dysgeusia [Unknown]
  - Muscle spasms [Recovering/Resolving]
  - Drug ineffective [Unknown]
  - Diarrhoea [Unknown]
